FAERS Safety Report 8085541-0 (Version None)
Quarter: 2012Q1

REPORT INFORMATION
  Report Type: 
  Country: None (occurrence: None)
  Receive Date: 20120128
  Receipt Date: 20110514
  Transmission Date: 20120608
  Serious: No
  Sender: FDA-Public Use
  Company Number: US-ABBOTT-11P-163-0713522-00

PATIENT
  Sex: Female
  Weight: 65.83 kg

DRUGS (2)
  1. TRIAMCINOLONE ACETONIDE [Concomitant]
     Indication: PSORIASIS
  2. HUMIRA [Suspect]
     Indication: PSORIASIS
     Dates: start: 20110101

REACTIONS (16)
  - PAIN OF SKIN [None]
  - SKIN INDURATION [None]
  - SCAB [None]
  - HYPERSOMNIA [None]
  - OTORRHOEA [None]
  - EAR DISCOMFORT [None]
  - NERVOUSNESS [None]
  - PRURITUS [None]
  - FURUNCLE [None]
  - SKIN BURNING SENSATION [None]
  - SKIN EXFOLIATION [None]
  - CRYING [None]
  - PSORIASIS [None]
  - WEIGHT DECREASED [None]
  - DECREASED APPETITE [None]
  - ANXIETY [None]
